FAERS Safety Report 6457315-5 (Version None)
Quarter: 2009Q4

REPORT INFORMATION
  Report Type: 
  Country: None (occurrence: None)
  Receive Date: 20091125
  Receipt Date: 20091118
  Transmission Date: 20100525
  Serious: Yes (Life-Threatening)
  Sender: FDA-Public Use
  Company Number: GXKR2009ES12659

PATIENT
  Age: 75 Year
  Sex: Female

DRUGS (6)
  1. CITALOPRAM BEXAL (NGX) [Suspect]
     Indication: DEPRESSION
     Dosage: 20 MG/DAY
     Route: 048
     Dates: start: 20081101, end: 20090430
  2. BISOPROLOL [Interacting]
     Dosage: UNK
     Route: 048
     Dates: start: 20070101
  3. DIGOXIN [Interacting]
     Dosage: 3 DF/WEEK
     Route: 048
     Dates: start: 20090301, end: 20090430
  4. TORASEMIDE [Concomitant]
     Dosage: 1 DF/DAY
     Route: 048
     Dates: start: 20080601
  5. ADIRO [Concomitant]
  6. VESICARE [Concomitant]
     Indication: URINARY INCONTINENCE
     Dosage: 5 MG/DAY
     Dates: start: 20090507

REACTIONS (5)
  - CARDIAC PACEMAKER INSERTION [None]
  - DRUG INTERACTION [None]
  - SYNCOPE [None]
  - TACHYCARDIA [None]
  - TORSADE DE POINTES [None]
